FAERS Safety Report 9612857 (Version 1)
Quarter: 2013Q4

REPORT INFORMATION
  Report Type: Spontaneous
  Country: US (occurrence: None)
  Receive Date: 20131008
  Receipt Date: 20131008
  Transmission Date: 20140711
  Serious: No
  Sender: FDA-Public Use
  Company Number: US-RRD-13-00010

PATIENT
  Age: 27 Year
  Sex: Female

DRUGS (1)
  1. PANHEMATIN [Suspect]
     Indication: PORPHYRIA
     Dosage: UNKNOWN ( 2 IN 1 WK), INTRAVENOUS
     Route: 042

REACTIONS (2)
  - Flushing [None]
  - Medical device complication [None]
